FAERS Safety Report 21074166 (Version 1)
Quarter: 2022Q3

REPORT INFORMATION
  Report Type: Spontaneous
  Country: CN (occurrence: CN)
  Receive Date: 20220713
  Receipt Date: 20220713
  Transmission Date: 20221026
  Serious: Yes (Life-Threatening)
  Sender: FDA-Public Use
  Company Number: CN-BAUSCH-BL-2022-017312

PATIENT
  Age: 29 Year
  Sex: Male

DRUGS (4)
  1. DEXAMETHASONE [Suspect]
     Active Substance: DEXAMETHASONE
     Indication: Mastocytic leukaemia
     Route: 065
  2. DASATINIB [Suspect]
     Active Substance: DASATINIB
     Indication: Mastocytic leukaemia
     Route: 065
  3. LUCITANIB [Suspect]
     Active Substance: LUCITANIB
     Indication: Mastocytic leukaemia
     Route: 065
  4. MIDOSTAURIN [Suspect]
     Active Substance: MIDOSTAURIN
     Indication: Mastocytic leukaemia
     Route: 065

REACTIONS (1)
  - Therapy non-responder [Unknown]
